FAERS Safety Report 14516572 (Version 3)
Quarter: 2019Q1

REPORT INFORMATION
  Report Type: Report from Study
  Country: US (occurrence: US)
  Receive Date: 20180212
  Receipt Date: 20190226
  Transmission Date: 20190417
  Serious: Yes (Hospitalization)
  Sender: FDA-Public Use
  Company Number: US-TAKEDA-2018TUS003488

PATIENT
  Sex: Male

DRUGS (1)
  1. PONATINIB [Suspect]
     Active Substance: PONATINIB
     Indication: CHRONIC MYELOID LEUKAEMIA
     Dosage: 45 MILLIGRAM, QD
     Route: 048
     Dates: start: 20180109

REACTIONS (10)
  - Dehydration [Unknown]
  - Product dose omission [Unknown]
  - Chest pain [Unknown]
  - Kidney infection [Unknown]
  - Chest discomfort [Unknown]
  - Vitreous floaters [Recovering/Resolving]
  - Arthritis [Unknown]
  - Rash [Unknown]
  - Optic neuritis [Unknown]
  - Alopecia [Unknown]
